FAERS Safety Report 8487627-5 (Version None)
Quarter: 2012Q3

REPORT INFORMATION
  Report Type: 
  Country: None (occurrence: None)
  Receive Date: 20120705
  Receipt Date: 20120626
  Transmission Date: 20120928
  Serious: Yes (Hospitalization)
  Sender: FDA-Public Use
  Company Number: US-BAYER-2012-042314

PATIENT
  Age: 28 Year
  Sex: Female
  Weight: 58.957 kg

DRUGS (13)
  1. ASPIRIN [Concomitant]
     Dosage: 81 MG, DAILY
     Dates: start: 20090219
  2. NITROGLYCERIN [Concomitant]
     Dosage: BID PRN
  3. NSAID'S [Concomitant]
     Dosage: UNK UNK, PRN
  4. ASPIRIN [Concomitant]
     Dosage: 81 MG, DAILY
  5. PENTOXIFYLLINE [Concomitant]
     Dosage: 400 MG, TID
     Dates: start: 20090219
  6. NORVASC [Concomitant]
     Dosage: 2.5 MG, DAILY
  7. YAZ [Suspect]
     Indication: CONTRACEPTION
     Dosage: UNK
     Dates: start: 20081116, end: 20090208
  8. YAZ [Suspect]
     Indication: ACNE
  9. BLOOD PRESSURE MEDICATION [Concomitant]
     Dosage: UNK
     Dates: start: 20090101
  10. NIFEDIPINE [Concomitant]
     Dosage: 30 MG, QD
  11. ADULT MULTI-VITAMIN [Concomitant]
     Indication: MEDICAL DIET
     Dosage: 1 PILL, QD
  12. YAZ [Suspect]
     Indication: PREMENSTRUAL SYNDROME
  13. AMLODIPINE [Concomitant]
     Dosage: 5 MG, QD
     Dates: start: 20090219

REACTIONS (5)
  - PAIN [None]
  - ARTERIAL THROMBOSIS [None]
  - PAIN IN EXTREMITY [None]
  - INJURY [None]
  - SKIN DISCOLOURATION [None]
